FAERS Safety Report 4608334-2 (Version None)
Quarter: 2005Q2

REPORT INFORMATION
  Report Type: 
  Country: None (occurrence: None)
  Receive Date: 20050301
  Receipt Date: 20040616
  Transmission Date: 20051028
  Serious: Yes (Hospitalization)
  Sender: FDA-Public Use
  Company Number: BDI-006213

PATIENT
  Age: 48 Year
  Sex: Female

DRUGS (2)
  1. ISOVUE-300 [Suspect]
     Indication: ABDOMINAL PAIN UPPER
     Dosage: 100 ML ONCE IV
     Route: 042
     Dates: start: 20040613, end: 20040613
  2. ISOVUE-300 [Suspect]
     Indication: COMPUTERISED TOMOGRAM ABDOMEN
     Dosage: 100 ML ONCE IV
     Route: 042
     Dates: start: 20040613, end: 20040613

REACTIONS (1)
  - ANAPHYLACTOID REACTION [None]
